FAERS Safety Report 12583501 (Version 2)
Quarter: 2016Q3

REPORT INFORMATION
  Report Type: Spontaneous
  Country: IT (occurrence: IT)
  Receive Date: 20160722
  Receipt Date: 20160728
  Transmission Date: 20161109
  Serious: Yes (Hospitalization)
  Sender: FDA-Public Use
  Company Number: IT-PFIZER INC-2016353902

PATIENT
  Age: 33 Year
  Sex: Female

DRUGS (5)
  1. FERTIFOL [Suspect]
     Active Substance: FOLIC ACID
     Indication: INTENTIONAL SELF-INJURY
     Dosage: 17 DF, TOTAL
     Route: 048
     Dates: start: 20160622, end: 20160622
  2. NORVASC [Suspect]
     Active Substance: AMLODIPINE BESYLATE
     Indication: INTENTIONAL SELF-INJURY
     Dosage: 100 MG, TOTAL
     Route: 048
     Dates: start: 20160622, end: 20160622
  3. TACHIPIRINA [Suspect]
     Active Substance: ACETAMINOPHEN
     Indication: INTENTIONAL SELF-INJURY
     Dosage: 8 G, TOTAL
     Route: 048
     Dates: start: 20160622, end: 20160622
  4. SPASMEX [Suspect]
     Active Substance: TROSPIUM CHLORIDE
     Indication: INTENTIONAL SELF-INJURY
     Dosage: 15 DF, TOTAL
     Route: 048
     Dates: start: 20160622, end: 20160622
  5. MAXAQUIN [Suspect]
     Active Substance: LOMEFLOXACIN HYDROCHLORIDE
     Indication: INTENTIONAL SELF-INJURY
     Dosage: 2 G, TOTAL
     Route: 048
     Dates: start: 20160622, end: 20160622

REACTIONS (5)
  - Intentional overdose [Unknown]
  - Drug abuse [Unknown]
  - Hypotension [Unknown]
  - Restlessness [Unknown]
  - Intentional self-injury [Unknown]

NARRATIVE: CASE EVENT DATE: 20160622
